FAERS Safety Report 6872278-6 (Version None)
Quarter: 2010Q3

REPORT INFORMATION
  Report Type: 
  Country: None (occurrence: None)
  Receive Date: 20100723
  Receipt Date: 20100713
  Transmission Date: 20110219
  Serious: Yes (Hospitalization)
  Sender: FDA-Public Use
  Company Number: TN-ROCHE-716064

PATIENT
  Sex: Male
  Weight: 59 kg

DRUGS (2)
  1. PEGASYS [Suspect]
     Dosage: UNITS: MICROG
     Route: 058
     Dates: start: 20090418, end: 20091026
  2. COPEGUS [Suspect]
     Dosage: FREQUENCY: DAILY
     Route: 048
     Dates: start: 20090418, end: 20091026

REACTIONS (4)
  - ABDOMINAL PAIN [None]
  - ASTHENIA [None]
  - CYTOLYTIC HEPATITIS [None]
  - JAUNDICE [None]
